FAERS Safety Report 23214212 (Version 1)
Quarter: 2023Q4

REPORT INFORMATION
  Report Type: Spontaneous
  Country: US (occurrence: None)
  Receive Date: 20231121
  Receipt Date: 20231121
  Transmission Date: 20240110
  Serious: No
  Sender: FDA-Public Use
  Company Number: None

PATIENT
  Sex: 0

DRUGS (2)
  1. ATROPINE SULFATE [Suspect]
     Active Substance: ATROPINE SULFATE
     Indication: Neuromuscular blockade reversal
     Dosage: OTHER FREQUENCY : ONCE;?
     Route: 042
     Dates: start: 20231120, end: 20231120
  2. REGADENOSON [Suspect]
     Active Substance: REGADENOSON
     Indication: Scan myocardial perfusion
     Dosage: OTHER FREQUENCY : ONCE;?
     Route: 042
     Dates: start: 20231120, end: 20231120

REACTIONS (2)
  - Product packaging confusion [None]
  - Wrong product administered [None]

NARRATIVE: CASE EVENT DATE: 20231120
